FAERS Safety Report 19789210 (Version 1)
Quarter: 2021Q3

REPORT INFORMATION
  Report Type: Spontaneous
  Country: CA (occurrence: CA)
  Receive Date: 20210905
  Receipt Date: 20210905
  Transmission Date: 20211014
  Serious: Yes (Life-Threatening, Hospitalization)
  Sender: FDA-Public Use
  Company Number: CA-TEVA-2021-CA-1948593

PATIENT
  Age: 21 Month
  Sex: Female
  Weight: 9 kg

DRUGS (1)
  1. CISPLATIN  INJECTION [Suspect]
     Active Substance: CISPLATIN
     Route: 065

REACTIONS (1)
  - Febrile neutropenia [Recovered/Resolved]
